FAERS Safety Report 13810453 (Version 6)
Quarter: 2018Q3

REPORT INFORMATION
  Report Type: Report from Study
  Country: US (occurrence: US)
  Receive Date: 20170728
  Receipt Date: 20180823
  Transmission Date: 20181010
  Serious: Yes (Hospitalization)
  Sender: FDA-Public Use
  Company Number: US-ACTELION-A-US2016-134768

PATIENT
  Age: 51 Year
  Sex: Female

DRUGS (39)
  1. LEVOTHYROXINE SODIUM. [Concomitant]
     Active Substance: LEVOTHYROXINE SODIUM
  2. LOVASTATIN ACTAVIS [Concomitant]
     Dosage: 20 MG, UNK
     Dates: start: 20180221
  3. LEVOXYL [Concomitant]
     Active Substance: LEVOTHYROXINE SODIUM
     Dosage: 150 MCG, UNK
  4. DICYCLOMINE [Concomitant]
     Active Substance: DICYCLOMINE HYDROCHLORIDE
     Dosage: 20 MG, UNK
  5. GABAPEN [Concomitant]
     Active Substance: GABAPENTIN
     Dosage: 600 MG, UNK
     Dates: start: 20180208
  6. ZOFRAN [Concomitant]
     Active Substance: ONDANSETRON HYDROCHLORIDE
     Dosage: 4 MG, UNK
     Dates: start: 20150828
  7. METOPROLOL SUCCINATE. [Concomitant]
     Active Substance: METOPROLOL SUCCINATE
     Dosage: 25 MG, UNK
     Dates: start: 20180424
  8. FUROSEMIDE. [Concomitant]
     Active Substance: FUROSEMIDE
     Dosage: 20 MG, UNK
     Dates: start: 20180112
  9. LIDOCAINE. [Concomitant]
     Active Substance: LIDOCAINE
  10. SILDENAFIL. [Suspect]
     Active Substance: SILDENAFIL
     Indication: PRODUCT USED FOR UNKNOWN INDICATION
     Dosage: 20 MG, QD
     Route: 065
     Dates: start: 20170505
  11. CYCLOBENZAPRINE. [Concomitant]
     Active Substance: CYCLOBENZAPRINE
     Dosage: 10 MG, UNK
  12. LOVASTATIN ACTAVIS [Concomitant]
     Dosage: 20 MG, UNK
     Dates: start: 20170505
  13. LEVOXYL [Concomitant]
     Active Substance: LEVOTHYROXINE SODIUM
     Dosage: 175 MCG, UNK
  14. CYTOMEL [Concomitant]
     Active Substance: LIOTHYRONINE SODIUM
     Dosage: 25 MCG, UNK
  15. RIZATRIPTAN. [Concomitant]
     Active Substance: RIZATRIPTAN
  16. PROAIR HFA [Concomitant]
     Active Substance: ALBUTEROL SULFATE
  17. NEURONTIN [Concomitant]
     Active Substance: GABAPENTIN
     Dosage: 800 MG, UNK
     Dates: start: 20150828
  18. ACIDOPHILUS PROBIOTIC [Concomitant]
     Dosage: 100 MG, UNK
     Dates: start: 20150828
  19. VITAMIN C [Concomitant]
     Active Substance: ASCORBIC ACID
     Dosage: 80 MG, UNK
     Route: 048
     Dates: start: 20150828
  20. LOVASTATIN ACTAVIS [Concomitant]
     Dosage: 20 MG, UNK
     Dates: start: 20180729
  21. POTASSIUM CHLORIDE. [Concomitant]
     Active Substance: POTASSIUM CHLORIDE
     Dosage: 10 MEQ, UNK
     Dates: start: 20180424
  22. MULTIVITAMIN [Concomitant]
     Active Substance: VITAMINS
     Dosage: UNK
     Dates: start: 20150828
  23. LORAZEPAM. [Concomitant]
     Active Substance: LORAZEPAM
     Dosage: 25 MG/ML, PRN
     Dates: start: 20150828
  24. TRAMADOL. [Concomitant]
     Active Substance: TRAMADOL
  25. OPSUMIT [Suspect]
     Active Substance: MACITENTAN
     Indication: PULMONARY ARTERIAL HYPERTENSION
     Dosage: 10 MG, QD
     Route: 048
     Dates: start: 20160804
  26. METOPROLOL SUCCINATE. [Concomitant]
     Active Substance: METOPROLOL SUCCINATE
     Dosage: 25 MG, UNK
     Dates: start: 20150828
  27. PREDNISONE. [Concomitant]
     Active Substance: PREDNISONE
     Dosage: 20 MG, UNK
     Dates: start: 20170405
  28. ALPRAZOLAM. [Concomitant]
     Active Substance: ALPRAZOLAM
  29. SYNTHROID [Concomitant]
     Active Substance: LEVOTHYROXINE SODIUM
     Dosage: 50 MCG, UNK
     Dates: start: 20150828
  30. METRONIDAZOLE. [Concomitant]
     Active Substance: METRONIDAZOLE
     Dosage: 500 MG, UNK
  31. FUROSEMIDE. [Concomitant]
     Active Substance: FUROSEMIDE
     Dosage: 10 MG/ML
     Dates: start: 20150828
  32. LOVASTATIN ACTAVIS [Concomitant]
     Dosage: 20 MG, UNK
     Dates: start: 20180727
  33. PROMETHAZINE [Concomitant]
     Active Substance: PROMETHAZINE\PROMETHAZINE HYDROCHLORIDE
     Dosage: 25 MG, UNK
  34. GABAPEN [Concomitant]
     Active Substance: GABAPENTIN
     Dosage: 800 MG, UNK
     Dates: start: 20180516
  35. GABAPEN [Concomitant]
     Active Substance: GABAPENTIN
     Dosage: 100 UNK, UNK
  36. METOPROLOL SUCCINATE. [Concomitant]
     Active Substance: METOPROLOL SUCCINATE
     Dosage: 25 MG, UNK
     Dates: start: 20180727
  37. CRANBERRY. [Concomitant]
     Active Substance: CRANBERRY
     Dosage: 250 MG, UNK
     Dates: start: 20150828
  38. CYCLOBENZAPRINE. [Concomitant]
     Active Substance: CYCLOBENZAPRINE
     Dosage: 10 MG, PRN
     Dates: start: 20150828
  39. PIROXICAM. [Concomitant]
     Active Substance: PIROXICAM
     Dosage: 20 MG, UNK

REACTIONS (25)
  - Headache [Recovered/Resolved]
  - Sneezing [Unknown]
  - Sinusitis [Unknown]
  - Musculoskeletal chest pain [Unknown]
  - Rhinitis [Unknown]
  - Drug dose omission [Recovered/Resolved]
  - Limb injury [Unknown]
  - Viral infection [Unknown]
  - Anxiety disorder [Unknown]
  - External ear disorder [Unknown]
  - Sinus headache [Unknown]
  - Dizziness [Unknown]
  - Vertigo [Unknown]
  - Upper respiratory tract infection [Unknown]
  - Dyspnoea [Not Recovered/Not Resolved]
  - Heart rate increased [Not Recovered/Not Resolved]
  - Fall [Unknown]
  - Rhinorrhoea [Unknown]
  - Hypotension [Unknown]
  - Staphylococcus test positive [Unknown]
  - Nasal discharge discolouration [Unknown]
  - Productive cough [Unknown]
  - Sputum discoloured [Unknown]
  - Pyrexia [Unknown]
  - Type IIa hyperlipidaemia [Unknown]

NARRATIVE: CASE EVENT DATE: 20161003
